FAERS Safety Report 7519559-0 (Version None)
Quarter: 2011Q2

REPORT INFORMATION
  Report Type: 
  Country: None (occurrence: None)
  Receive Date: 20110602
  Receipt Date: 20110531
  Transmission Date: 20111010
  Serious: Yes (Other)
  Sender: FDA-Public Use
  Company Number: GB-PFIZER INC-2011079139

PATIENT
  Age: 67 Year
  Sex: Female

DRUGS (5)
  1. VARENICLINE TARTRATE [Suspect]
     Indication: SMOKING CESSATION THERAPY
     Dosage: UNK
     Dates: start: 20110305
  2. VENTOLIN [Concomitant]
     Route: 055
  3. SPIRIVA [Concomitant]
     Dosage: UNK
     Route: 055
     Dates: start: 20070101
  4. VARENICLINE TARTRATE [Suspect]
     Dosage: 1 MG, 2X/DAY
  5. SERETIDE [Concomitant]
     Dosage: 250 UNIT DOSE, UNK
     Route: 055

REACTIONS (4)
  - RASH [None]
  - GROIN PAIN [None]
  - GROIN ABSCESS [None]
  - PSORIASIS [None]
